FAERS Safety Report 17338896 (Version 1)
Quarter: 2020Q1

REPORT INFORMATION
  Report Type: Spontaneous
  Country: FR (occurrence: FR)
  Receive Date: 20200129
  Receipt Date: 20200129
  Transmission Date: 20200409
  Serious: Yes (Hospitalization)
  Sender: FDA-Public Use
  Company Number: FR-PFIZER INC-2020033637

PATIENT
  Age: 75 Year
  Sex: Male
  Weight: 67 kg

DRUGS (14)
  1. METOCLOPRAMIDE. [Concomitant]
     Active Substance: METOCLOPRAMIDE
     Dosage: UNK
     Route: 048
  2. PANTOPRAZOLE [Concomitant]
     Active Substance: PANTOPRAZOLE
     Dosage: UNK
     Route: 048
  3. ALFUZOSINE HYDROCHLORIDE [Concomitant]
     Active Substance: ALFUZOSIN HYDROCHLORIDE
     Dosage: UNK
     Route: 048
  4. TERALITHE [Concomitant]
     Active Substance: LITHIUM CARBONATE
     Dosage: UNK
     Route: 048
  5. LEVOTHYROXINE SODIUM. [Concomitant]
     Active Substance: LEVOTHYROXINE SODIUM
     Dosage: UNK
     Route: 048
  6. KARDEGIC [Concomitant]
     Active Substance: ASPIRIN DL-LYSINE
     Dosage: UNK
     Route: 048
  7. NEUPRO [Concomitant]
     Active Substance: ROTIGOTINE
     Dosage: UNK
     Route: 062
  8. LOPERAMIDE HYDROCHLORIDE. [Concomitant]
     Active Substance: LOPERAMIDE HYDROCHLORIDE
     Dosage: UNK
     Route: 048
  9. FLUOROURACILE ACCORD [Suspect]
     Active Substance: FLUOROURACIL
     Indication: OESOPHAGEAL CARCINOMA
     Dosage: 1800 MG/M2, EVERY 2 WEEKS (FOLFIRI CURE WITH 75% 5FU AND IRINOTECAN)
     Route: 041
     Dates: start: 20191114
  10. IRINOTECAN HCL [Suspect]
     Active Substance: IRINOTECAN HYDROCHLORIDE
     Indication: OESOPHAGEAL CARCINOMA
     Dosage: 63.75 MG/M2, EVERY 2 WEEKS (FOLRIFI CURE WITH 75% IRINOTECAN AND 5FU)
     Route: 041
     Dates: start: 20191114, end: 20191114
  11. CALCIUM FOLINATE [Suspect]
     Active Substance: LEUCOVORIN CALCIUM
     Indication: CHEMOTHERAPY TOXICITY ATTENUATION
     Dosage: 400 MG/M2, EVERY 2 WEEKS (FOLFIRI CURE)
     Route: 041
     Dates: start: 20191114
  12. SIMVASTATINE [Concomitant]
     Active Substance: SIMVASTATIN
     Dosage: UNK
     Route: 048
  13. AMLODIPINE [Concomitant]
     Active Substance: AMLODIPINE BESYLATE
     Dosage: UNK
     Route: 048
  14. PARACETAMOL [Concomitant]
     Active Substance: ACETAMINOPHEN
     Dosage: UNK
     Route: 048

REACTIONS (3)
  - Hypokalaemia [Recovered/Resolved]
  - Diarrhoea [Recovered/Resolved]
  - Paraesthesia [Unknown]

NARRATIVE: CASE EVENT DATE: 20191120
